FAERS Safety Report 10022169 (Version 1)
Quarter: 2014Q1

REPORT INFORMATION
  Report Type: Spontaneous
  Country: FR (occurrence: FR)
  Receive Date: 20140317
  Receipt Date: 20140317
  Transmission Date: 20141002
  Serious: Yes (Other)
  Sender: FDA-Public Use
  Company Number: FR-RB-064513-14

PATIENT
  Age: 49 Year
  Sex: Male

DRUGS (5)
  1. SUBUTEX [Suspect]
     Indication: PRODUCT USED FOR UNKNOWN INDICATION
     Route: 048
     Dates: start: 2012
  2. BACLOFEN [Suspect]
     Indication: PRODUCT USED FOR UNKNOWN INDICATION
     Dosage: STARTED ON UNKNOWN DOSE, WITH PROGRESSIVE POSOLOGY UNTIL 240 MG DAILY
     Route: 048
     Dates: start: 20131216, end: 2014
  3. BACLOFEN [Suspect]
     Route: 048
     Dates: start: 2014, end: 2014
  4. BACLOFEN [Suspect]
     Route: 048
     Dates: start: 2014
  5. NORSET [Concomitant]
     Indication: PRODUCT USED FOR UNKNOWN INDICATION
     Dosage: UNKNOWN UNIT DOSE STRENGTH
     Route: 048
     Dates: start: 2012

REACTIONS (1)
  - Sleep apnoea syndrome [Not Recovered/Not Resolved]
